FAERS Safety Report 11809624 (Version 1)
Quarter: 2015Q4

REPORT INFORMATION
  Report Type: Spontaneous
  Country: DE (occurrence: DE)
  Receive Date: 20151208
  Receipt Date: 20151208
  Transmission Date: 20160305
  Serious: Yes (Hospitalization)
  Sender: FDA-Public Use
  Company Number: DE-AUROBINDO-AUR-APL-2015-10962

PATIENT
  Age: 64 Year
  Sex: Female

DRUGS (17)
  1. QUILONORM RETARD [Suspect]
     Active Substance: LITHIUM CARBONATE
     Indication: PRODUCT USED FOR UNKNOWN INDICATION
     Dosage: 11125 MG, DAILY
     Route: 048
     Dates: start: 20141203
  2. QUILONORM RETARD [Suspect]
     Active Substance: LITHIUM CARBONATE
     Dosage: 675 MG, DAILY
     Route: 048
     Dates: start: 20141221, end: 20150105
  3. QUILONORM RETARD [Suspect]
     Active Substance: LITHIUM CARBONATE
     Dosage: 450 MG, UNK
     Route: 048
     Dates: start: 20150106, end: 20150118
  4. BISOPROLOL [Concomitant]
     Active Substance: BISOPROLOL
     Indication: PRODUCT USED FOR UNKNOWN INDICATION
     Dosage: 5 MG, DAILY
     Route: 048
  5. CYMBALTA [Concomitant]
     Active Substance: DULOXETINE HYDROCHLORIDE
     Dosage: 60 MG, DAILY
     Route: 048
     Dates: start: 20141206, end: 20141221
  6. CYMBALTA [Concomitant]
     Active Substance: DULOXETINE HYDROCHLORIDE
     Dosage: 90 MG, DAILY
     Route: 048
     Dates: start: 20141222
  7. CARMEN                             /01366402/ [Concomitant]
     Active Substance: LERCANIDIPINE
     Indication: PRODUCT USED FOR UNKNOWN INDICATION
     Dosage: 20 MG, DAILY
     Route: 048
     Dates: start: 201410
  8. HYDROCHLOROTHIAZIDE 25 MG [Suspect]
     Active Substance: HYDROCHLOROTHIAZIDE
     Indication: PRODUCT USED FOR UNKNOWN INDICATION
     Dosage: 25 MG, DAILY, LONG TERM
     Route: 048
  9. QUILONORM RETARD [Suspect]
     Active Substance: LITHIUM CARBONATE
     Dosage: 450 MG, DAILY
     Route: 048
     Dates: start: 20141209, end: 20141220
  10. CYMBALTA [Concomitant]
     Active Substance: DULOXETINE HYDROCHLORIDE
     Dosage: 120 MG, DAILY
     Route: 048
     Dates: start: 20141201, end: 20141205
  11. QUILONORM RETARD [Suspect]
     Active Substance: LITHIUM CARBONATE
     Dosage: 675 MG, UNK
     Route: 048
     Dates: start: 20141204, end: 20141205
  12. DOXEPIN [Concomitant]
     Active Substance: DOXEPIN
     Indication: PRODUCT USED FOR UNKNOWN INDICATION
     Dosage: 75 MG, DAILY
     Route: 048
     Dates: end: 20150111
  13. MOXONIDIN [Concomitant]
     Active Substance: MOXONIDINE
     Indication: PRODUCT USED FOR UNKNOWN INDICATION
     Dosage: 0.4 MG, DAILY
     Route: 048
     Dates: start: 20141028, end: 20141208
  14. SPIRONOLACTONE. [Suspect]
     Active Substance: SPIRONOLACTONE
     Indication: PRODUCT USED FOR UNKNOWN INDICATION
     Dosage: 25 MG, DAILY
     Route: 048
     Dates: start: 20141128, end: 20141205
  15. CYMBALTA [Concomitant]
     Active Substance: DULOXETINE HYDROCHLORIDE
     Indication: PRODUCT USED FOR UNKNOWN INDICATION
     Dosage: 30 MG, DAILY
     Route: 048
     Dates: start: 20141028, end: 20141127
  16. CYMBALTA [Concomitant]
     Active Substance: DULOXETINE HYDROCHLORIDE
     Dosage: 60 MG, DAILY
     Route: 048
     Dates: start: 20141128, end: 20141130
  17. DOXEPIN [Concomitant]
     Active Substance: DOXEPIN
     Dosage: 50 MG, DAILY
     Route: 048
     Dates: start: 20150112

REACTIONS (1)
  - Toxicity to various agents [Recovered/Resolved]

NARRATIVE: CASE EVENT DATE: 20141201
